FAERS Safety Report 8916214 (Version 1)
Quarter: 2012Q4

REPORT INFORMATION
  Report Type: 
  Country: US (occurrence: US)
  Receive Date: 20121120
  Receipt Date: 20121120
  Transmission Date: 20130627
  Serious: Yes (Hospitalization)
  Sender: FDA-Public Use
  Company Number: US-INCYTE CORPORATION-2012IN002363

PATIENT
  Sex: Female
  Weight: 43.54 kg

DRUGS (1)
  1. JAKAFI [Suspect]
     Dosage: 20 mg, bid
     Route: 048
     Dates: start: 20120508, end: 20121010

REACTIONS (1)
  - Surgery [Unknown]
